FAERS Safety Report 9207905 (Version 1)
Quarter: 2013Q2

REPORT INFORMATION
  Report Type: Other
  Country: IT (occurrence: IT)
  Receive Date: 20130403
  Receipt Date: 20130403
  Transmission Date: 20140414
  Serious: Yes (Hospitalization)
  Sender: FDA-Public Use
  Company Number: IT-WATSON-2013-05409

PATIENT
  Sex: Male

DRUGS (1)
  1. GLIMEPIRIDE [Suspect]
     Indication: PRODUCT USED FOR UNKNOWN INDICATION
     Dosage: UNK
     Route: 065

REACTIONS (3)
  - Bradykinesia [Recovered/Resolved]
  - Hypoglycaemia [Recovered/Resolved]
  - Bradyphrenia [Recovered/Resolved]
